FAERS Safety Report 25259964 (Version 1)
Quarter: 2025Q2

REPORT INFORMATION
  Report Type: Spontaneous
  Country: QA (occurrence: QA)
  Receive Date: 20250501
  Receipt Date: 20250501
  Transmission Date: 20250716
  Serious: Yes (Death, Hospitalization, Other)
  Sender: AMGEN
  Company Number: QA-AMGEN-QATSP2025080646

PATIENT

DRUGS (2)
  1. ADALIMUMAB [Suspect]
     Active Substance: ADALIMUMAB
     Indication: Product used for unknown indication
     Route: 065
  2. ETANERCEPT [Suspect]
     Active Substance: ETANERCEPT
     Indication: Product used for unknown indication
     Route: 065

REACTIONS (17)
  - Death [Fatal]
  - Infection [Unknown]
  - Mycobacterial infection [Unknown]
  - Osteomyelitis [Unknown]
  - Lymph node tuberculosis [Unknown]
  - Pulmonary tuberculosis [Unknown]
  - Tuberculosis [Unknown]
  - COVID-19 [Unknown]
  - Viral infection [Unknown]
  - Genital infection [Unknown]
  - Soft tissue infection [Unknown]
  - Respiratory tract infection [Unknown]
  - Bacterial infection [Unknown]
  - Skin infection [Unknown]
  - Gastrointestinal infection [Unknown]
  - Arthritis infective [Unknown]
  - Staphylococcal infection [Unknown]
